FAERS Safety Report 19998333 (Version 1)
Quarter: 2021Q4

REPORT INFORMATION
  Report Type: Spontaneous
  Country: US (occurrence: US)
  Receive Date: 20211026
  Receipt Date: 20211026
  Transmission Date: 20220303
  Serious: Yes (Other)
  Sender: FDA-Public Use
  Company Number: US-NOVARTISPH-NVSC2021US240805

PATIENT
  Sex: Female

DRUGS (2)
  1. TEGRETOL [Suspect]
     Active Substance: CARBAMAZEPINE
     Indication: Seizure
     Dosage: UNK
     Route: 065
  2. LYRICA [Suspect]
     Active Substance: PREGABALIN
     Indication: Epilepsy
     Dosage: 25 MG (SIX TIMES A DAY BY MOUTH)
     Route: 048

REACTIONS (4)
  - Suicidal ideation [Unknown]
  - Neuropathy peripheral [Unknown]
  - Aura [Unknown]
  - Feeling abnormal [Unknown]
